FAERS Safety Report 13803627 (Version 1)
Quarter: 2017Q3

REPORT INFORMATION
  Report Type: Spontaneous
  Country: US (occurrence: US)
  Receive Date: 20170728
  Receipt Date: 20170728
  Transmission Date: 20171127
  Serious: Yes (Disabling)
  Sender: FDA-Public Use
  Company Number: None

PATIENT
  Age: 57 Year
  Sex: Female
  Weight: 98.52 kg

DRUGS (4)
  1. I-CAPS [Concomitant]
  2. COENZYME Q10 [Concomitant]
     Active Substance: UBIDECARENONE
  3. VITAMIN D3 [Concomitant]
     Active Substance: CHOLECALCIFEROL
  4. FLUOROURACIL 5% CREAM USP [Suspect]
     Active Substance: FLUOROURACIL
     Indication: LIP DISORDER
     Dosage: APPLY CREAM 2XDAY N/A 2 X DAY APPLIED TO LIPS
     Route: 061
     Dates: start: 20170603, end: 20170617

REACTIONS (4)
  - Dysphonia [None]
  - Laryngeal oedema [None]
  - Laryngitis [None]
  - Pharyngitis [None]

NARRATIVE: CASE EVENT DATE: 20170610
